FAERS Safety Report 6864048-X (Version None)
Quarter: 2010Q3

REPORT INFORMATION
  Report Type: 
  Country: None (occurrence: None)
  Receive Date: 20100721
  Receipt Date: 20080317
  Transmission Date: 20110219
  Serious: No
  Sender: FDA-Public Use
  Company Number: US-PFIZER INC-2008024197

PATIENT
  Sex: Female
  Weight: 86.4 kg

DRUGS (5)
  1. CHANTIX [Suspect]
     Indication: SMOKING CESSATION THERAPY
     Dates: start: 20070601, end: 20071001
  2. LITHIUM [Concomitant]
  3. METHADONE HCL [Concomitant]
  4. VICODIN [Concomitant]
  5. RELPAX [Concomitant]

REACTIONS (2)
  - MALAISE [None]
  - NAUSEA [None]
